FAERS Safety Report 20520081 (Version 6)
Quarter: 2023Q1

REPORT INFORMATION
  Report Type: Spontaneous
  Country: FR (occurrence: FR)
  Receive Date: 20220225
  Receipt Date: 20230131
  Transmission Date: 20230418
  Serious: Yes (Hospitalization, Other)
  Sender: FDA-Public Use
  Company Number: None

PATIENT
  Age: 72 Year
  Sex: Male
  Weight: 87 kg

DRUGS (22)
  1. ATRACURIUM BESYLATE [Suspect]
     Active Substance: ATRACURIUM BESYLATE
     Indication: COVID-19 pneumonia
     Dosage: 43 MILLIGRAM, Q1HR
     Route: 042
     Dates: start: 20220131
  2. ATRACURIUM BESYLATE [Suspect]
     Active Substance: ATRACURIUM BESYLATE
     Indication: Endotracheal intubation
  3. PANTOPRAZOLE [Suspect]
     Active Substance: PANTOPRAZOLE
     Indication: Abdominal pain upper
     Dosage: 40 MILLIGRAM, QD
     Route: 042
     Dates: start: 20220128, end: 20220209
  4. LANTUS [Suspect]
     Active Substance: INSULIN GLARGINE
     Indication: COVID-19 pneumonia
     Dosage: 24 INTERNATIONAL UNIT, QD
     Route: 058
  5. LANTUS [Suspect]
     Active Substance: INSULIN GLARGINE
     Indication: Diabetes mellitus
  6. DEXAMETHASONE [Suspect]
     Active Substance: DEXAMETHASONE
     Indication: COVID-19 pneumonia
     Dosage: 6 MILLIGRAM, QD
     Route: 042
     Dates: start: 20220126
  7. NOVORAPID [Suspect]
     Active Substance: INSULIN ASPART
     Indication: COVID-19 pneumonia
     Dosage: 3 DF
     Route: 058
  8. NOVORAPID [Suspect]
     Active Substance: INSULIN ASPART
     Indication: Diabetes mellitus
  9. CALCIPARINE [Suspect]
     Active Substance: HEPARIN CALCIUM
     Indication: COVID-19 pneumonia
     Dosage: 5000 INTERNATIONAL UNIT, Q12H
     Route: 058
     Dates: start: 20220126, end: 20220207
  10. CALCIPARINE [Suspect]
     Active Substance: HEPARIN CALCIUM
     Indication: Thrombosis prophylaxis
  11. KAYEXALATE [Suspect]
     Active Substance: SODIUM POLYSTYRENE SULFONATE
     Indication: COVID-19 pneumonia
     Dosage: UNK UNK, QD
     Route: 048
     Dates: start: 20220203
  12. KAYEXALATE [Suspect]
     Active Substance: SODIUM POLYSTYRENE SULFONATE
     Indication: Hyperkalaemia
  13. FENTANYL [Suspect]
     Active Substance: FENTANYL
     Indication: COVID-19 pneumonia
     Dosage: 50 MICROGRAM, Q1HR
     Route: 042
     Dates: start: 20220131
  14. FENTANYL [Suspect]
     Active Substance: FENTANYL
     Indication: Sedation
  15. MIDAZOLAM HYDROCHLORIDE [Suspect]
     Active Substance: MIDAZOLAM HYDROCHLORIDE
     Indication: COVID-19 pneumonia
     Dosage: 6 MILLIGRAM, Q1HR
     Route: 042
     Dates: start: 20220131
  16. MIDAZOLAM HYDROCHLORIDE [Suspect]
     Active Substance: MIDAZOLAM HYDROCHLORIDE
     Indication: Sedation
  17. KARDEGIC [Suspect]
     Active Substance: ASPIRIN DL-LYSINE
     Indication: COVID-19 pneumonia
     Dosage: 75 MILLIGRAM, QD
     Route: 048
     Dates: end: 20220209
  18. KARDEGIC [Suspect]
     Active Substance: ASPIRIN DL-LYSINE
     Indication: Myocardial ischaemia
  19. POLYETHYLENE GLYCOLS [Suspect]
     Active Substance: POLYETHYLENE GLYCOLS
     Indication: COVID-19 pneumonia
     Dosage: UNK UNK, QD
     Route: 048
     Dates: start: 20220203
  20. POLYETHYLENE GLYCOLS [Suspect]
     Active Substance: POLYETHYLENE GLYCOLS
     Indication: Constipation
  21. METOCLOPRAMIDE [Suspect]
     Active Substance: METOCLOPRAMIDE
     Indication: COVID-19 pneumonia
     Dosage: 10 MG, 3X/DAY
     Route: 042
     Dates: start: 20220201, end: 20220208
  22. METOCLOPRAMIDE [Suspect]
     Active Substance: METOCLOPRAMIDE
     Indication: Nausea

REACTIONS (1)
  - Thrombocytopenia [Not Recovered/Not Resolved]

NARRATIVE: CASE EVENT DATE: 20220205
